FAERS Safety Report 18091153 (Version 1)
Quarter: 2020Q3

REPORT INFORMATION
  Report Type: Spontaneous
  Country: US (occurrence: US)
  Receive Date: 20200729
  Receipt Date: 20200729
  Transmission Date: 20201103
  Serious: No
  Sender: FDA-Public Use
  Company Number: None

PATIENT

DRUGS (1)
  1. PREGABALIN. [Suspect]
     Active Substance: PREGABALIN
     Route: 048
     Dates: start: 20200108, end: 20200418

REACTIONS (3)
  - Weight increased [None]
  - Dysstasia [None]
  - Mobility decreased [None]

NARRATIVE: CASE EVENT DATE: 20200108
